FAERS Safety Report 9454284 (Version 1)
Quarter: 2013Q3

REPORT INFORMATION
  Report Type: Spontaneous
  Country: FR (occurrence: FR)
  Receive Date: 20130812
  Receipt Date: 20130812
  Transmission Date: 20140515
  Serious: Yes (Life-Threatening, Hospitalization)
  Sender: FDA-Public Use
  Company Number: FR-PFIZER INC-2013229131

PATIENT
  Age: 69 Year
  Sex: Male

DRUGS (7)
  1. FLUDARABINE PHOSPHATE [Suspect]
     Indication: CHRONIC LYMPHOCYTIC LEUKAEMIA
     Dosage: 25 MG/M2, DAILY
     Route: 042
  2. CYCLOPHOSPHAMIDE [Suspect]
     Indication: CHRONIC LYMPHOCYTIC LEUKAEMIA
     Dosage: 250 MG/M2, 1X/DAY
     Route: 042
  3. RITUXIMAB [Suspect]
     Indication: CHRONIC LYMPHOCYTIC LEUKAEMIA
     Dosage: 375 MG/M2, CYCLIC (DAY 1 OF CYCLE 1 )
     Route: 042
  4. RITUXIMAB [Suspect]
     Dosage: 500 MG/M2, CYCLIC (DAY 15 OF CYCLE 1 AND ON DAY 1 OF CYCLE 2)
  5. VALACYCLOVIR [Concomitant]
     Indication: PROPHYLAXIS
     Dosage: UNK, TWICE DAILY
  6. COTRIMOXAZOLE [Concomitant]
     Indication: PROPHYLAXIS
     Dosage: UNK, THRICE WEEKLY
  7. PEGFILGRASTIM [Concomitant]
     Dosage: ON DAY 7 (SINGLE)

REACTIONS (1)
  - Meningitis cryptococcal [Recovering/Resolving]
